FAERS Safety Report 9055320 (Version 1)
Quarter: 2013Q1

REPORT INFORMATION
  Report Type: Report from Study
  Country: TR (occurrence: TR)
  Receive Date: 20130206
  Receipt Date: 20130206
  Transmission Date: 20140127
  Serious: Yes (Other)
  Sender: FDA-Public Use
  Company Number: TR-ROCHE-1187911

PATIENT
  Age: 75 None
  Sex: Male

DRUGS (1)
  1. CAPECITABINE [Suspect]
     Indication: PRODUCT USED FOR UNKNOWN INDICATION
     Dosage: 500 MG 3X2
     Route: 048
     Dates: start: 20130110, end: 20130117

REACTIONS (1)
  - General physical health deterioration [Not Recovered/Not Resolved]
